FAERS Safety Report 9704225 (Version 1)
Quarter: 2013Q4

REPORT INFORMATION
  Report Type: Spontaneous
  Country: DE (occurrence: DE)
  Receive Date: 20131122
  Receipt Date: 20131122
  Transmission Date: 20140711
  Serious: Yes (Hospitalization)
  Sender: FDA-Public Use
  Company Number: DE-PFIZER INC-2013330988

PATIENT
  Age: 21 Year
  Sex: Female
  Weight: 75 kg

DRUGS (4)
  1. LYRICA [Suspect]
     Dosage: 100 MG, 1X/DAY
     Route: 048
     Dates: start: 20121028, end: 20130310
  2. TRUXAL [Concomitant]
     Dosage: 60 MG, 1X/DAY
     Route: 048
  3. CIPRALEX [Concomitant]
     Dosage: 10 MG, 1X/DAY
     Route: 048
  4. L-THYROXIN [Concomitant]
     Dosage: 75 UG, 1X/DAY
     Route: 048

REACTIONS (5)
  - Weight increased [Unknown]
  - Fear [Unknown]
  - Anxiety [Unknown]
  - Aggression [Unknown]
  - Increased appetite [Recovering/Resolving]
